FAERS Safety Report 14908734 (Version 1)
Quarter: 2018Q2

REPORT INFORMATION
  Report Type: Spontaneous
  Country: US (occurrence: US)
  Receive Date: 20180517
  Receipt Date: 20180517
  Transmission Date: 20180711
  Serious: No
  Sender: FDA-Public Use
  Company Number: US-JNJFOC-20180426473

PATIENT
  Age: 80 Year
  Sex: Male

DRUGS (1)
  1. TYLENOL EXTRA STRENGTH [Suspect]
     Active Substance: ACETAMINOPHEN
     Indication: FEELING OF RELAXATION
     Dosage: 2 TABLETS
     Route: 048
     Dates: start: 20180418

REACTIONS (4)
  - Product label issue [Unknown]
  - Product use in unapproved indication [Unknown]
  - Wrong drug administered [Unknown]
  - Expired product administered [Unknown]
